FAERS Safety Report 10923650 (Version 1)
Quarter: 2015Q1

REPORT INFORMATION
  Report Type: Spontaneous
  Country: US (occurrence: US)
  Receive Date: 20150318
  Receipt Date: 20150318
  Transmission Date: 20150721
  Serious: Yes (Death, Hospitalization, Other)
  Sender: FDA-Public Use
  Company Number: 20122600554/2013045462

PATIENT

DRUGS (67)
  1. METACMUCIL SMOOTH TEXTURE 56.6% POWDER [Concomitant]
     Indication: PRODUCT USED FOR UNKNOWN INDICATION
     Dosage: 15 ML, BID
     Route: 048
     Dates: start: 20120921
  2. PHENERGAN TABS 25 MG [Concomitant]
     Dosage: 1/2 - 1 TAB 4-6 HR AS NEEDED
     Route: 048
     Dates: start: 20110927
  3. SYNTHROID TAB [Concomitant]
     Indication: HORMONE REPLACEMENT THERAPY
     Dosage: 0.1 MG, OD
     Route: 048
     Dates: start: 19970704
  4. SYNTHROID TAB [Concomitant]
     Dosage: 0.125 MG, OD
     Dates: start: 20001213
  5. ACIPHEX 20 MG TBEC [Concomitant]
     Indication: PRODUCT USED FOR UNKNOWN INDICATION
     Dosage: 20 MG, OD
     Route: 048
     Dates: start: 20031125
  6. BACTRIM DS [Suspect]
     Active Substance: SULFAMETHOXAZOLE\TRIMETHOPRIM
     Dosage: 1 DF, BID
     Route: 048
     Dates: start: 20081020, end: 20081030
  7. BACTRIM DS [Suspect]
     Active Substance: SULFAMETHOXAZOLE\TRIMETHOPRIM
     Dosage: 1 DF, BID
     Route: 048
     Dates: start: 20091209, end: 20091214
  8. PHENERGAN TABS 25 MG [Concomitant]
     Dosage: 1/2 - 1 TAB 4-6 HR AS NEEDED
     Route: 048
     Dates: start: 20100219
  9. ZYRTEC TAB 100 MG [Concomitant]
     Indication: ALLERGY PROPHYLAXIS
     Dosage: 1 TAB PER DAY AS NEEDED
     Route: 048
     Dates: start: 20040916
  10. BACTRIM DS [Suspect]
     Active Substance: SULFAMETHOXAZOLE\TRIMETHOPRIM
     Indication: INFECTION
     Dosage: 1 DF, BID
     Route: 048
     Dates: start: 20071005, end: 20071012
  11. ASPIRIN 81 MG EC TAB [Concomitant]
     Indication: CARDIOVASCULAR EVENT PROPHYLAXIS
  12. AVAPRO TAB 300 MG [Concomitant]
     Indication: BLOOD PRESSURE ABNORMAL
     Dosage: 300 MG, OD
     Route: 048
     Dates: start: 20110128
  13. CIPRO [Concomitant]
     Active Substance: CIPROFLOXACIN HYDROCHLORIDE
     Indication: PRODUCT USED FOR UNKNOWN INDICATION
     Dosage: 500 MG, 1DOSE/MONTH
     Route: 048
     Dates: start: 20080912, end: 20080917
  14. PHENERGAN TABS 25 MG [Concomitant]
     Dosage: 1/2 - 1 TAB 4-6 HR AS NEEDED
     Route: 048
     Dates: start: 20101230
  15. XOPENEX HFA 45 MCG/ACT AERO [Concomitant]
     Indication: CHEST DISCOMFORT
  16. HYDROCODONE-GUAIFENESIN 5-100 MG/5 ML SYRP [Concomitant]
     Indication: COUGH
     Dosage: 5ML EVERY 4-6 HOURS AS NEEDED
     Route: 048
     Dates: start: 20080522, end: 20090122
  17. BACTRIM DS [Suspect]
     Active Substance: SULFAMETHOXAZOLE\TRIMETHOPRIM
     Dosage: 1 DF, BID
     Route: 048
     Dates: start: 20080908, end: 20080915
  18. CELEBREX [Suspect]
     Active Substance: CELECOXIB
     Indication: OSTEOARTHRITIS
     Dosage: 1 CAP 1-2X/DAY AS NEEDED
     Route: 048
     Dates: start: 20050517, end: 20120921
  19. PAXIL 40 MG TABS [Concomitant]
     Indication: PRODUCT USED FOR UNKNOWN INDICATION
     Dosage: 40 MG, OD
     Route: 048
     Dates: start: 20050504, end: 20090911
  20. PHENERGAN TABS 12.5 MG [Concomitant]
     Indication: NAUSEA
     Dosage: 1 TAB THEN 1/2 TAB 1HR IF NEEDED
     Route: 048
     Dates: start: 20070412, end: 20071005
  21. COLACE 100 MG CAPSULES [Concomitant]
     Indication: PRODUCT USED FOR UNKNOWN INDICATION
     Dosage: 1-2 CAPS QHS
     Route: 048
     Dates: start: 20121001
  22. ADVAIR DISKUS 500-50 MCG/DOSE [Concomitant]
     Indication: PRODUCT USED FOR UNKNOWN INDICATION
     Dosage: 1 PUFF BY MOUTH TWICE A DAY
     Route: 065
     Dates: start: 20011218
  23. TRAZODONE HCL 100 MG TAB [Concomitant]
     Indication: PRODUCT USED FOR UNKNOWN INDICATION
     Dosage: 100 MG, OD
     Route: 048
     Dates: start: 20010913
  24. AVALIDE 300-25 MG [Concomitant]
     Indication: BLOOD PRESSURE ABNORMAL
     Dosage: 1 DF, OD
     Route: 048
     Dates: start: 20090602, end: 20110128
  25. NORVASC 5 MG TABS [Concomitant]
     Indication: PRODUCT USED FOR UNKNOWN INDICATION
     Dosage: 10 MG, OD
     Route: 048
     Dates: start: 20110314
  26. ONDANSETRON HCL 4 MG TABS [Concomitant]
     Indication: NAUSEA
     Dosage: 1TAB EVERY 6HRS AS NEEDED
     Route: 048
     Dates: start: 20120110
  27. NASONEX SUS 50 MCG/AC [Concomitant]
     Indication: PRODUCT USED FOR UNKNOWN INDICATION
     Dosage: 2 SQUIRTS EACH NOSTRIL 1-2X/DAY PRN
     Route: 065
     Dates: start: 20080825, end: 20090911
  28. HYDROCHLOROT TAB 25 MG [Concomitant]
     Indication: BLOOD PRESSURE ABNORMAL
     Dosage: 25 MG, OD
     Route: 048
     Dates: start: 20120508
  29. MIRALAX POWDER [Concomitant]
     Indication: PRODUCT USED FOR UNKNOWN INDICATION
     Dosage: 1 DF, BID
     Route: 048
     Dates: start: 20121001
  30. CALCIUM 600 MG TAB -D [Concomitant]
     Indication: PRODUCT USED FOR UNKNOWN INDICATION
     Dosage: 1500 MG, OD
     Route: 048
     Dates: start: 20040916
  31. FOLIC ACID TAB 1MG [Concomitant]
     Indication: PRODUCT USED FOR UNKNOWN INDICATION
     Dosage: 2 MG, OD
     Route: 048
     Dates: start: 20040224, end: 20071001
  32. COMBIVENT AER [Concomitant]
     Indication: PRODUCT USED FOR UNKNOWN INDICATION
     Dosage: 2 PUFFS BY MOUTH EVERY 6HRS
     Route: 065
     Dates: start: 20040205, end: 20120110
  33. CENTRUM SILVER TABS [Concomitant]
     Indication: PRODUCT USED FOR UNKNOWN INDICATION
     Dosage: 1 DF, OD
     Route: 048
     Dates: start: 20050517
  34. CYCLOBENZAPRINE HCL 10 MG TABS [Concomitant]
     Indication: MUSCLE SPASMS
     Dosage: 1TAB AT BEDTIMES AS NEEDED
     Route: 048
     Dates: start: 20110304
  35. BACTRIM DS [Suspect]
     Active Substance: SULFAMETHOXAZOLE\TRIMETHOPRIM
     Dosage: 1 DF, BID
     Route: 048
     Dates: start: 20121119, end: 20121124
  36. AVAPRO TAB 300 MG [Concomitant]
     Indication: CARDIOVASCULAR EVENT PROPHYLAXIS
  37. PHENERGAN TABS 25 MG [Concomitant]
     Indication: NAUSEA
     Dosage: 1/2 - 1 TAB 4-6 HR AS NEEDED
     Route: 048
     Dates: start: 20090916
  38. PHENERGAN TABS 25 MG [Concomitant]
     Dosage: 1/2 - 1 TAB 4-6 HR AS NEEDED
     Route: 048
     Dates: start: 20121001
  39. HYDROCHLOROT TAB 25 MG [Concomitant]
     Indication: SWELLING
     Dosage: 25 MG, OD
     Route: 048
     Dates: start: 20130111
  40. ADVAIR DISKUS 500-50 MCG/DOSE [Concomitant]
     Dosage: 1 PUFF BY MOUTH TWICE A DAY
     Route: 065
     Dates: start: 20110328
  41. ADVAIR HFA 230-21MCG/ACT [Concomitant]
     Indication: PRODUCT USED FOR UNKNOWN INDICATION
     Dosage: 1 PUFF BY MOUTH TWICE A DAY
     Route: 065
     Dates: start: 20080308
  42. PHILLIPS MILK OF MAGNESIA 311 MG CHEW [Concomitant]
     Indication: CONSTIPATION
     Dosage: 300 MG, TID
     Route: 048
     Dates: start: 20070404, end: 20080305
  43. INFLUENZA VACCINE [Concomitant]
     Active Substance: INFLUENZA VIRUS VACCINE
     Indication: OSTEOARTHRITIS
     Dosage: UNK
     Route: 065
     Dates: start: 20081020, end: 20081020
  44. ASPIRIN 81 MG EC TAB [Concomitant]
     Indication: ANTICOAGULANT THERAPY
     Dosage: 81 MG, OD
     Route: 048
     Dates: start: 20120809, end: 20120915
  45. ACTONEL 150 MG TABS [Concomitant]
     Indication: PRODUCT USED FOR UNKNOWN INDICATION
     Dosage: 150 MG, 1DOSE/MONTH
     Dates: start: 20090508, end: 20110128
  46. XOPENEX HFA 45 MCG/ACT AERO [Concomitant]
     Indication: WHEEZING
  47. CITRUCEL 500 MG TABS [Concomitant]
     Indication: PRODUCT USED FOR UNKNOWN INDICATION
     Dosage: 1-2TABS 1-2 TIMES A DAY
     Route: 048
     Dates: start: 20120921
  48. FERROUS SULFATE TAB 325 MG EC [Concomitant]
     Indication: PRODUCT USED FOR UNKNOWN INDICATION
     Dosage: 325 MG, BID
     Route: 048
     Dates: start: 20121001
  49. VITAMIN C 250 MG TABS [Concomitant]
     Indication: DRUG THERAPY ENHANCEMENT
     Dosage: 250 MG, BID
     Route: 048
     Dates: start: 20121001
  50. SYNTHROID TAB [Concomitant]
     Dosage: 0.1 MG, OD
     Route: 048
     Dates: start: 20051202
  51. PROCET TABS [Concomitant]
     Indication: PAIN
     Dosage: 1 TAB EVERY 4-6HRS AS NEEDED
     Route: 048
     Dates: start: 20050517
  52. PRAVACHOL 20 MG TABS [Concomitant]
     Indication: BLOOD CHOLESTEROL ABNORMAL
     Dosage: UNK
     Route: 048
     Dates: start: 20070529
  53. VITAMIN C 500 MG TR [Concomitant]
     Indication: DRUG THERAPY ENHANCEMENT
     Dosage: 250 MG, BID
     Route: 048
     Dates: start: 20070404, end: 20120809
  54. COLACE CAP 100 MG [Concomitant]
     Indication: CONSTIPATION PROPHYLAXIS
     Dosage: 100 MG, BID
     Route: 048
     Dates: start: 20070404, end: 20070305
  55. DIFLUCAN TAB 150 MG [Concomitant]
     Indication: FUNGAL INFECTION
     Dosage: 1TAB AS SINGLE DOSE AS NEEDED
     Route: 048
     Dates: start: 20071005, end: 20071006
  56. PHENERGAN TABS 25 MG [Concomitant]
     Dosage: 1/2 - 1 TAB 4-6 HR AS NEEDED
     Route: 048
     Dates: start: 20100719
  57. PHENERGAN TABS 25 MG [Concomitant]
     Dosage: 1/2 - 1 TAB 4-6 HR AS NEEDED
     Route: 048
     Dates: start: 20110630
  58. XOPENEX HFA 45 MCG/ACT AERO [Concomitant]
     Indication: COUGH
     Dosage: 2 PUFFS Q4-6HRS AS NEEDED
     Route: 055
     Dates: start: 20120110
  59. CITRUCEL 500 MG TABS [Concomitant]
     Dosage: 1-2TABS 1-2 TIMES A DAY
     Route: 048
     Dates: start: 20121001
  60. AVALIDE 300-25 MG [Concomitant]
     Indication: CARDIOVASCULAR EVENT PROPHYLAXIS
  61. CENTRUM SILVER TABS [Concomitant]
     Dosage: 1 DF, OD
     Route: 048
     Dates: start: 20070404
  62. BONIVA 150 MG TABS [Concomitant]
     Indication: PRODUCT USED FOR UNKNOWN INDICATION
     Dosage: 150 MG, 1DOSE/MONTH
     Route: 048
     Dates: start: 20080519, end: 20090508
  63. XOPENEX 1.5 MG/3ML NEB SOL [Concomitant]
     Indication: ASTHMA
     Dosage: 1 UNIT DOSE PER NEB 3X/DAY AS NEEDED
     Route: 065
     Dates: start: 20090121, end: 20110128
  64. PROMETHAZINE HCL 25 MG TAB [Concomitant]
     Indication: NAUSEA
     Dosage: 1/2-1TAB 4-6HRS AS NEEDED UP TO 5/24HRS
     Route: 048
     Dates: start: 20110927
  65. VESICARE 5 MG TABS [Concomitant]
     Indication: PRODUCT USED FOR UNKNOWN INDICATION
     Dosage: 5 MG, OD
     Route: 048
     Dates: start: 20110210
  66. ONDANSETRON HCL 4 MG TABS [Concomitant]
     Indication: WHEEZING
  67. ONDANSETRON HCL 4 MG TABS [Concomitant]
     Indication: CHEST DISCOMFORT

REACTIONS (35)
  - Neck pain [Recovered/Resolved]
  - Constipation [Unknown]
  - Nausea [Recovered/Resolved]
  - Abdominal pain [Unknown]
  - Gastritis [Unknown]
  - Muscle spasms [Unknown]
  - Oedema peripheral [Unknown]
  - Cystitis [Unknown]
  - Hypokalaemia [Recovered/Resolved]
  - Gastrointestinal haemorrhage [Recovered/Resolved]
  - Oesophageal candidiasis [Recovered/Resolved]
  - Lymphadenopathy [Unknown]
  - Speech disorder [Unknown]
  - Myalgia [Unknown]
  - Cough [Unknown]
  - Oesophageal candidiasis [None]
  - Pleural effusion [Recovered/Resolved]
  - Oral candidiasis [Unknown]
  - Sinusitis [Unknown]
  - Libido decreased [Unknown]
  - Dizziness [Recovered/Resolved]
  - Gastroenteritis [Recovered/Resolved]
  - Pulmonary hypertension [Unknown]
  - Intervertebral disc degeneration [Unknown]
  - Musculoskeletal pain [Unknown]
  - Migraine [Recovered/Resolved]
  - Pyrexia [Recovered/Resolved]
  - Drug ineffective [None]
  - Angiodysplasia [None]
  - Migraine [None]
  - Anaemia [Unknown]
  - Gastrointestinal angiodysplasia [Unknown]
  - Haematuria [Unknown]
  - Chest pain [Recovered/Resolved]
  - Skin candida [Unknown]

NARRATIVE: CASE EVENT DATE: 20071212
